FAERS Safety Report 17709508 (Version 1)
Quarter: 2020Q2

REPORT INFORMATION
  Report Type: Spontaneous
  Country: LB (occurrence: LB)
  Receive Date: 20200427
  Receipt Date: 20200427
  Transmission Date: 20200714
  Serious: Yes (Hospitalization, Other)
  Sender: FDA-Public Use
  Company Number: LB-009507513-2004LBN007121

PATIENT
  Age: 25 Year
  Sex: Female

DRUGS (15)
  1. FLUDARABINE PHOSPHATE. [Suspect]
     Active Substance: FLUDARABINE PHOSPHATE
     Indication: WHITE BLOOD CELL COUNT DECREASED
     Dosage: UNK
     Route: 065
     Dates: start: 201811
  2. PEMBROLIZUMAB. [Suspect]
     Active Substance: PEMBROLIZUMAB
     Indication: WHITE BLOOD CELL COUNT DECREASED
     Dosage: 200 MILLIGRAM
     Route: 042
     Dates: start: 20190322
  3. VINCRISTINE SULFATE. [Suspect]
     Active Substance: VINCRISTINE SULFATE
     Indication: B-CELL LYMPHOMA
     Dosage: 6 CYCLES
     Route: 065
     Dates: start: 201803, end: 201806
  4. DOXORUBICIN HYDROCHLORIDE. [Suspect]
     Active Substance: DOXORUBICIN HYDROCHLORIDE
     Indication: B-CELL LYMPHOMA
     Dosage: 6 CYCLES
     Route: 065
     Dates: start: 201803, end: 201806
  5. OXALIPLATIN. [Suspect]
     Active Substance: OXALIPLATIN
     Indication: WHITE BLOOD CELL COUNT DECREASED
     Dosage: 1 CYCLE
     Route: 065
     Dates: start: 201811
  6. RITUXIMAB. [Suspect]
     Active Substance: RITUXIMAB
     Dosage: 1 CYCLE
     Route: 065
     Dates: start: 20180801
  7. CISPLATIN. [Suspect]
     Active Substance: CISPLATIN
     Indication: B-CELL LYMPHOMA
     Dosage: 1 CYCLE
     Route: 065
     Dates: start: 201908
  8. RITUXIMAB. [Suspect]
     Active Substance: RITUXIMAB
     Indication: B-CELL LYMPHOMA
     Dosage: 6 CYCLES
     Route: 065
     Dates: start: 201803
  9. GEMCITABINE. [Suspect]
     Active Substance: GEMCITABINE
     Indication: WHITE BLOOD CELL COUNT DECREASED
     Dosage: 1 CYCLE
     Route: 065
     Dates: start: 201811
  10. DEXAMETHASONE. [Suspect]
     Active Substance: DEXAMETHASONE
     Indication: B-CELL LYMPHOMA
     Dosage: 1 CYCLE
     Route: 065
     Dates: start: 201808
  11. CYTARABINE. [Suspect]
     Active Substance: CYTARABINE
     Indication: B-CELL LYMPHOMA
     Dosage: 1 CYCLE
     Route: 065
     Dates: start: 201808
  12. CYCLOPHOSPHAMIDE. [Suspect]
     Active Substance: CYCLOPHOSPHAMIDE
     Indication: B-CELL LYMPHOMA
     Dosage: UNK
     Route: 065
     Dates: start: 201803, end: 201806
  13. CYCLOPHOSPHAMIDE. [Suspect]
     Active Substance: CYCLOPHOSPHAMIDE
     Indication: WHITE BLOOD CELL COUNT DECREASED
     Dosage: UNK
     Route: 065
     Dates: start: 201811
  14. ETOPOSIDE PHOSPHATE [Suspect]
     Active Substance: ETOPOSIDE PHOSPHATE
     Indication: B-CELL LYMPHOMA
     Dosage: 6 CYCLES
     Route: 065
     Dates: start: 201803, end: 201806
  15. PREDNISONE. [Suspect]
     Active Substance: PREDNISONE
     Indication: B-CELL LYMPHOMA
     Dosage: 6 CYCLES
     Route: 065
     Dates: start: 201803, end: 201806

REACTIONS (15)
  - Cytokine release syndrome [Unknown]
  - Hypoxia [Unknown]
  - Hypotension [Unknown]
  - Pleural effusion [Unknown]
  - Device related infection [Unknown]
  - Soft tissue mass [Unknown]
  - Lymphadenopathy mediastinal [Unknown]
  - Aphasia [Unknown]
  - General physical health deterioration [Unknown]
  - Pleural mass [Unknown]
  - Dyspnoea [Unknown]
  - Febrile neutropenia [Unknown]
  - Pyrexia [Recovered/Resolved]
  - Fatigue [Unknown]
  - Subclavian vein thrombosis [Unknown]
